FAERS Safety Report 16715821 (Version 2)
Quarter: 2019Q3

REPORT INFORMATION
  Report Type: Spontaneous
  Country: US (occurrence: US)
  Receive Date: 20190819
  Receipt Date: 20190911
  Transmission Date: 20191005
  Serious: No
  Sender: FDA-Public Use
  Company Number: US-TEVA-2019-US-1093060

PATIENT
  Sex: Female

DRUGS (2)
  1. RISEDRONATE SODIUM TABLETS [Suspect]
     Active Substance: RISEDRONATE SODIUM
     Indication: OSTEOPOROSIS
     Route: 065
     Dates: start: 20190101, end: 20190712
  2. RISEDRONATE SODIUM TABLETS [Suspect]
     Active Substance: RISEDRONATE SODIUM
     Route: 065
     Dates: start: 20190826

REACTIONS (2)
  - Arthralgia [Recovering/Resolving]
  - Back pain [Recovering/Resolving]

NARRATIVE: CASE EVENT DATE: 20190701
